FAERS Safety Report 18912286 (Version 1)
Quarter: 2021Q1

REPORT INFORMATION
  Report Type: Spontaneous
  Country: MY (occurrence: MY)
  Receive Date: 20210219
  Receipt Date: 20210219
  Transmission Date: 20210420
  Serious: Yes (Other)
  Sender: FDA-Public Use
  Company Number: MY-JNJFOC-20210231875

PATIENT
  Age: 72 Year
  Sex: Male

DRUGS (2)
  1. XARELTO [Suspect]
     Active Substance: RIVAROXABAN
     Indication: CEREBROVASCULAR ACCIDENT PROPHYLAXIS
     Route: 048
  2. XARELTO [Suspect]
     Active Substance: RIVAROXABAN
     Indication: ATRIAL FIBRILLATION

REACTIONS (2)
  - Blood test abnormal [Not Recovered/Not Resolved]
  - Hepatic cancer [Unknown]

NARRATIVE: CASE EVENT DATE: 20210216
